FAERS Safety Report 11419009 (Version 2)
Quarter: 2015Q4

REPORT INFORMATION
  Report Type: Report from Study
  Country: US (occurrence: US)
  Receive Date: 20150826
  Receipt Date: 20151005
  Transmission Date: 20160304
  Serious: No
  Sender: FDA-Public Use
  Company Number: US-AMGEN-USASP2015083438

PATIENT
  Age: 51 Year
  Sex: Female

DRUGS (1)
  1. ENBREL [Suspect]
     Active Substance: ETANERCEPT
     Indication: RHEUMATOID ARTHRITIS
     Dosage: 50 MG, QWK
     Route: 065
     Dates: start: 20150211

REACTIONS (11)
  - Stress [Recovering/Resolving]
  - Muscle disorder [Unknown]
  - Injection site reaction [Unknown]
  - Injection site bruising [Recovering/Resolving]
  - Condition aggravated [Recovered/Resolved]
  - Injection site haemorrhage [Recovering/Resolving]
  - Wrong technique in product usage process [Unknown]
  - Injection site pain [Recovering/Resolving]
  - Injection site discomfort [Unknown]
  - Pain in extremity [Recovered/Resolved]
  - Musculoskeletal stiffness [Not Recovered/Not Resolved]

NARRATIVE: CASE EVENT DATE: 2015
